FAERS Safety Report 23858216 (Version 1)
Quarter: 2024Q2

REPORT INFORMATION
  Report Type: Spontaneous
  Country: US (occurrence: None)
  Receive Date: 20240514
  Receipt Date: 20240514
  Transmission Date: 20240716
  Serious: Yes (Death)
  Sender: FDA-Public Use
  Company Number: None

PATIENT
  Age: 77 Year
  Sex: Male

DRUGS (6)
  1. TOLVAPTAN [Suspect]
     Active Substance: TOLVAPTAN
     Indication: Hyponatraemia
     Dosage: 1 TABLET EVERY OTHER DAY ORAL
     Route: 048
     Dates: start: 20240419, end: 20240508
  2. ASPIRIN [Concomitant]
     Active Substance: ASPIRIN
  3. FARXIGA [Concomitant]
     Active Substance: DAPAGLIFLOZIN PROPANEDIOL
  4. NITROSTAT [Concomitant]
     Active Substance: NITROGLYCERIN
  5. FISH OIL [Concomitant]
     Active Substance: FISH OIL
  6. CRESTOR [Concomitant]
     Active Substance: ROSUVASTATIN CALCIUM

REACTIONS (1)
  - Blood sodium decreased [None]

NARRATIVE: CASE EVENT DATE: 20240508
